FAERS Safety Report 5123116-3 (Version None)
Quarter: 2006Q4

REPORT INFORMATION
  Report Type: 
  Country: None (occurrence: None)
  Receive Date: 20061005
  Receipt Date: 20060925
  Transmission Date: 20070319
  Serious: Yes (Life-Threatening, Hospitalization)
  Sender: FDA-Public Use
  Company Number: 2006SP000744

PATIENT
  Age: 30 Year
  Sex: Male
  Weight: 117.028 kg

DRUGS (2)
  1. TEMOZOLOMIDE [Suspect]
     Indication: METASTATIC MALIGNANT MELANOMA
     Dosage: 360 MG
     Dates: start: 20060616, end: 20060806
  2. ZOFRAN [Concomitant]

REACTIONS (8)
  - ANAEMIA HAEMOLYTIC AUTOIMMUNE [None]
  - BONE MARROW FAILURE [None]
  - COOMBS TEST POSITIVE [None]
  - HAEMATOMA [None]
  - JAUNDICE [None]
  - PANCYTOPENIA [None]
  - PYREXIA [None]
  - SKIN LESION [None]
